FAERS Safety Report 6280436-7 (Version None)
Quarter: 2009Q3

REPORT INFORMATION
  Report Type: 
  Country: None (occurrence: None)
  Receive Date: 20090724
  Receipt Date: 20090713
  Transmission Date: 20100115
  Serious: Yes (Other)
  Sender: FDA-Public Use
  Company Number: JP-PFIZER INC-2009219135

PATIENT
  Age: 62 Year

DRUGS (3)
  1. ZITHROMAX [Suspect]
     Indication: ACUTE TONSILLITIS
     Dosage: 500 MG, 1X/DAY
     Route: 048
     Dates: start: 20090522, end: 20090524
  2. TRANSAMIN [Suspect]
  3. PL GRAN. [Suspect]

REACTIONS (6)
  - BLISTER [None]
  - DRUG ERUPTION [None]
  - DYSPNOEA [None]
  - ERYTHEMA [None]
  - OCULAR HYPERAEMIA [None]
  - OEDEMA MOUTH [None]
